FAERS Safety Report 8027012-3 (Version None)
Quarter: 2012Q1

REPORT INFORMATION
  Report Type: 
  Country: None (occurrence: None)
  Receive Date: 20120106
  Receipt Date: 20120103
  Transmission Date: 20120608
  Serious: Yes (Hospitalization, Congenital Anomaly, Other)
  Sender: FDA-Public Use
  Company Number: US-PFIZER INC-2011158463

PATIENT
  Sex: Male
  Weight: 2.5 kg

DRUGS (4)
  1. EFFEXOR [Suspect]
     Dosage: UNK
     Route: 064
  2. AUGMENTIN '125' [Concomitant]
     Dosage: UNK
     Route: 064
     Dates: start: 20100322
  3. AMOXICILLIN AND CLAVULANATE POTASSIUM [Concomitant]
     Dosage: UNK
     Route: 064
     Dates: start: 20100322
  4. ACETAMINOPHEN [Concomitant]
     Indication: SINUS HEADACHE
     Dosage: UNK
     Route: 064
     Dates: start: 20100322

REACTIONS (21)
  - FALLOT'S TETRALOGY [None]
  - VENTRICULAR SEPTAL DEFECT [None]
  - CARDIOMEGALY [None]
  - CHYLOTHORAX [None]
  - DOUBLE OUTLET RIGHT VENTRICLE [None]
  - CARDIAC FAILURE CONGESTIVE [None]
  - ATRIAL SEPTAL DEFECT [None]
  - PLAGIOCEPHALY [None]
  - CONGENITAL PULMONARY HYPERTENSION [None]
  - NODAL ARRHYTHMIA [None]
  - FAILURE TO THRIVE [None]
  - PATENT DUCTUS ARTERIOSUS [None]
  - MATERNAL EXPOSURE TIMING UNSPECIFIED [None]
  - TRANSPOSITION OF THE GREAT VESSELS [None]
  - PULMONARY ARTERY STENOSIS CONGENITAL [None]
  - TRICUSPID VALVE INCOMPETENCE [None]
  - PERSISTENT LEFT SUPERIOR VENA CAVA [None]
  - CONGENITAL CORONARY ARTERY MALFORMATION [None]
  - AORTIC VALVE STENOSIS [None]
  - PULMONARY OEDEMA [None]
  - TORTICOLLIS [None]
